FAERS Safety Report 22136428 (Version 1)
Quarter: 2023Q1

REPORT INFORMATION
  Report Type: Spontaneous
  Country: US (occurrence: US)
  Receive Date: 20230324
  Receipt Date: 20230324
  Transmission Date: 20230417
  Serious: No
  Sender: FDA-Public Use
  Company Number: US-SEATTLE GENETICS-2023SGN00142

PATIENT
  Sex: Female

DRUGS (1)
  1. TIVDAK [Suspect]
     Active Substance: TISOTUMAB VEDOTIN-TFTV
     Indication: Product used for unknown indication
     Dosage: UNK
     Route: 065
     Dates: start: 20221221

REACTIONS (5)
  - Erythema [Unknown]
  - Alopecia [Unknown]
  - Constipation [Unknown]
  - Rash [Unknown]
  - Dry eye [Unknown]
